FAERS Safety Report 12977571 (Version 1)
Quarter: 2016Q4

REPORT INFORMATION
  Report Type: Other
  Country: US (occurrence: US)
  Receive Date: 20161128
  Receipt Date: 20161128
  Transmission Date: 20170207
  Serious: Yes (Hospitalization)
  Sender: FDA-Public Use
  Company Number: US-LUPIN PHARMACEUTICALS INC.-2016-05266

PATIENT
  Age: 63 Year
  Sex: Female

DRUGS (13)
  1. RILPIVIRINE [Interacting]
     Active Substance: RILPIVIRINE
     Indication: HIV INFECTION
  2. COBICISTAT [Interacting]
     Active Substance: COBICISTAT
     Indication: ACQUIRED IMMUNODEFICIENCY SYNDROME
     Route: 065
  3. TENOFOVIR [Interacting]
     Active Substance: TENOFOVIR
     Indication: HIV INFECTION
  4. EMTRICITABINE [Interacting]
     Active Substance: EMTRICITABINE
     Indication: HIV INFECTION
  5. ELVITEGRAVIR [Interacting]
     Active Substance: ELVITEGRAVIR
     Indication: HIV INFECTION
  6. ASPIRIN. [Concomitant]
     Active Substance: ASPIRIN
     Indication: PRODUCT USED FOR UNKNOWN INDICATION
     Route: 065
  7. SIMVASTATIN. [Suspect]
     Active Substance: SIMVASTATIN
     Indication: PRODUCT USED FOR UNKNOWN INDICATION
     Route: 065
  8. EMTRICITABINE [Interacting]
     Active Substance: EMTRICITABINE
     Indication: ACQUIRED IMMUNODEFICIENCY SYNDROME
     Route: 065
  9. TRIMETHOPRIM/SULFAMETHOXAZOLE [Concomitant]
     Active Substance: SULFAMETHOXAZOLE\TRIMETHOPRIM
     Indication: PRODUCT USED FOR UNKNOWN INDICATION
     Route: 065
  10. COBICISTAT [Interacting]
     Active Substance: COBICISTAT
     Indication: HIV INFECTION
  11. TENOFOVIR [Interacting]
     Active Substance: TENOFOVIR
     Indication: ACQUIRED IMMUNODEFICIENCY SYNDROME
     Route: 065
  12. ELVITEGRAVIR [Interacting]
     Active Substance: ELVITEGRAVIR
     Indication: ACQUIRED IMMUNODEFICIENCY SYNDROME
     Route: 065
  13. RILPIVIRINE [Interacting]
     Active Substance: RILPIVIRINE
     Indication: ACQUIRED IMMUNODEFICIENCY SYNDROME
     Route: 065

REACTIONS (3)
  - Rhabdomyolysis [Unknown]
  - Dysphagia [Recovering/Resolving]
  - Drug interaction [Unknown]
